FAERS Safety Report 8111923-4 (Version None)
Quarter: 2012Q1

REPORT INFORMATION
  Report Type: 
  Country: None (occurrence: None)
  Receive Date: 20120203
  Receipt Date: 20110502
  Transmission Date: 20120608
  Serious: No
  Sender: FDA-Public Use
  Company Number: US-GLAXOSMITHKLINE-A0925337A

PATIENT
  Age: 61 Year
  Sex: Male

DRUGS (7)
  1. VIMPAT [Concomitant]
  2. SPIRONOLACTONE [Concomitant]
  3. LEVOTHYROXINE SODIUM [Concomitant]
  4. ARIXTRA [Suspect]
     Indication: DEEP VEIN THROMBOSIS
     Dosage: 2.5MG PER DAY
     Route: 058
     Dates: start: 20110301
  5. OXCARBAZEPINE [Concomitant]
  6. METOPROLOL [Concomitant]
  7. LEVETIRACETAM [Concomitant]

REACTIONS (2)
  - EYE DISORDER [None]
  - OCULAR HYPERAEMIA [None]
